FAERS Safety Report 13881162 (Version 1)
Quarter: 2017Q3

REPORT INFORMATION
  Report Type: Spontaneous
  Country: US (occurrence: US)
  Receive Date: 20170818
  Receipt Date: 20170818
  Transmission Date: 20171127
  Serious: No
  Sender: FDA-Public Use
  Company Number: US-PFIZER INC-2017356656

PATIENT
  Sex: Female

DRUGS (3)
  1. ATORVASTATIN CALCIUM. [Suspect]
     Active Substance: ATORVASTATIN CALCIUM
     Dosage: 80 MG, DAILY
  2. VENLAFAXINE HCL [Suspect]
     Active Substance: VENLAFAXINE HYDROCHLORIDE
     Dosage: 37.5 MG, 2X/DAY
  3. XELJANZ [Suspect]
     Active Substance: TOFACITINIB CITRATE
     Dosage: 5 MG, 2X/DAY

REACTIONS (23)
  - Pain [Unknown]
  - Synovitis [Unknown]
  - Blood creatinine decreased [Unknown]
  - Amnesia [Unknown]
  - Tooth fracture [Unknown]
  - Sinusitis [Unknown]
  - Muscle spasms [Unknown]
  - Blood alkaline phosphatase increased [Unknown]
  - Urine analysis abnormal [Unknown]
  - Anti-cyclic citrullinated peptide antibody positive [Unknown]
  - Dry mouth [Unknown]
  - Depression [Unknown]
  - Visual impairment [Unknown]
  - Arthralgia [Unknown]
  - Anxiety [Unknown]
  - Rheumatoid factor increased [Unknown]
  - Bruxism [Unknown]
  - Liver function test increased [Unknown]
  - Joint swelling [Unknown]
  - Gait disturbance [Unknown]
  - Protein total decreased [Unknown]
  - Total complement activity increased [Unknown]
  - Joint range of motion decreased [Unknown]
